FAERS Safety Report 5493048-X (Version None)
Quarter: 2007Q4

REPORT INFORMATION
  Report Type: 
  Country: None (occurrence: None)
  Receive Date: 20071023
  Receipt Date: 20071018
  Transmission Date: 20080405
  Serious: Yes (Hospitalization, Other)
  Sender: FDA-Public Use
  Company Number: ES-WYE-G00488207

PATIENT
  Age: 43 Year
  Sex: Female

DRUGS (1)
  1. TYGACIL [Suspect]
     Dosage: UNKNOWN
     Dates: start: 20070928, end: 20071014

REACTIONS (1)
  - HEPATITIS [None]
